FAERS Safety Report 21687252 (Version 3)
Quarter: 2025Q1

REPORT INFORMATION
  Report Type: Spontaneous
  Country: CA (occurrence: CA)
  Receive Date: 20221206
  Receipt Date: 20250215
  Transmission Date: 20250409
  Serious: Yes (Other)
  Sender: USPHARMA
  Company Number: None

PATIENT
  Age: 53 Year
  Sex: Female

DRUGS (136)
  1. NITROGLYCERIN [Suspect]
     Active Substance: NITROGLYCERIN
     Indication: Product used for unknown indication
     Route: 065
  2. NITROGLYCERIN [Suspect]
     Active Substance: NITROGLYCERIN
     Indication: Oesophageal spasm
     Route: 065
  3. ACETAMINOPHEN [Suspect]
     Active Substance: ACETAMINOPHEN
     Indication: Pruritus
     Route: 065
  4. ACETAMINOPHEN\CAFFEINE\CODEINE PHOSPHATE [Suspect]
     Active Substance: ACETAMINOPHEN\CAFFEINE\CODEINE PHOSPHATE
     Indication: Pruritus
     Route: 065
  5. ALENDRONATE SODIUM [Suspect]
     Active Substance: ALENDRONATE SODIUM
     Indication: Product used for unknown indication
     Route: 065
  6. ALENDRONATE SODIUM\CHOLECALCIFEROL [Suspect]
     Active Substance: ALENDRONATE SODIUM\CHOLECALCIFEROL
     Indication: Osteoporosis postmenopausal
     Route: 065
  7. AMITRIPTYLINE [Suspect]
     Active Substance: AMITRIPTYLINE
     Indication: Depression
     Route: 065
  8. FUROSEMIDE [Suspect]
     Active Substance: FUROSEMIDE
     Indication: Fluid retention
     Route: 065
  9. FERROUS GLUCONATE [Suspect]
     Active Substance: FERROUS GLUCONATE
     Indication: Iron deficiency
     Route: 065
  10. SULFAMETHOXAZOLE\TRIMETHOPRIM [Suspect]
     Active Substance: SULFAMETHOXAZOLE\TRIMETHOPRIM
     Indication: Stomatitis
     Route: 065
  11. ATROVENT HFA [Suspect]
     Active Substance: IPRATROPIUM BROMIDE
     Indication: Product used for unknown indication
     Route: 065
  12. BREO ELLIPTA [Suspect]
     Active Substance: FLUTICASONE FUROATE\VILANTEROL TRIFENATATE
     Indication: Product used for unknown indication
     Dosage: INHALATION
     Route: 065
  13. BUPROPION [Suspect]
     Active Substance: BUPROPION
     Indication: Urticaria
     Route: 065
  14. CAFFEINE [Suspect]
     Active Substance: CAFFEINE
     Indication: Pruritus
     Route: 065
  15. CEFUROXIME AXETIL [Suspect]
     Active Substance: CEFUROXIME AXETIL
     Indication: Product used for unknown indication
     Route: 065
  16. CELEBREX [Suspect]
     Active Substance: CELECOXIB
     Indication: Oesophageal pain
     Route: 065
  17. CEPHALEXIN [Suspect]
     Active Substance: CEPHALEXIN
     Indication: Vomiting
     Route: 065
  18. CIPRO [Suspect]
     Active Substance: CIPROFLOXACIN HYDROCHLORIDE
     Indication: Urticaria
     Route: 065
  19. CLOPIDOGREL [Suspect]
     Active Substance: CLOPIDOGREL BISULFATE
     Indication: Anticoagulant therapy
     Route: 065
  20. CIPROFLOXACIN [Suspect]
     Active Substance: CIPROFLOXACIN
     Indication: Product used for unknown indication
     Route: 065
  21. CODEINE [Suspect]
     Active Substance: CODEINE
     Indication: Pruritus
     Route: 065
  22. CYMBALTA [Suspect]
     Active Substance: DULOXETINE HYDROCHLORIDE
     Indication: Depression
     Route: 065
  23. FERROUS GLUCONATE [Suspect]
     Active Substance: FERROUS GLUCONATE
     Indication: Product used for unknown indication
     Route: 065
  24. FLOVENT [Suspect]
     Active Substance: FLUTICASONE PROPIONATE
     Indication: Chronic obstructive pulmonary disease
     Route: 065
  25. GABAPENTIN [Suspect]
     Active Substance: GABAPENTIN
     Indication: Product used for unknown indication
     Route: 065
  26. GRAVOL [Suspect]
     Active Substance: DIMENHYDRINATE
     Indication: Anxiety
     Route: 065
  27. INDOMETHACIN [Suspect]
     Active Substance: INDOMETHACIN
     Indication: Product used for unknown indication
     Route: 065
  28. INDOMETHACIN SODIUM [Suspect]
     Active Substance: INDOMETHACIN SODIUM
     Indication: Product used for unknown indication
     Route: 065
  29. INDOMETHACIN [Suspect]
     Active Substance: INDOMETHACIN
     Indication: Vomiting
     Route: 065
  30. INSULIN ASPART [Suspect]
     Active Substance: INSULIN ASPART
     Indication: Product used for unknown indication
     Route: 065
  31. KETAMINE [Suspect]
     Active Substance: KETAMINE
     Indication: Hallucination
     Route: 065
  32. MACROBID [Suspect]
     Active Substance: NITROFURANTOIN\NITROFURANTOIN MONOHYDRATE
     Indication: Product used for unknown indication
     Route: 065
  33. MOXIFLOXACIN HYDROCHLORIDE [Suspect]
     Active Substance: MOXIFLOXACIN HYDROCHLORIDE
     Indication: Rash
     Route: 065
  34. NAPROXEN SODIUM [Suspect]
     Active Substance: NAPROXEN SODIUM
     Indication: Pruritus
     Route: 065
  35. NITROFURANTOIN [Suspect]
     Active Substance: NITROFURANTOIN
     Indication: Cystitis
     Route: 065
  36. NOVORAPID [Suspect]
     Active Substance: INSULIN ASPART
     Indication: Type 2 diabetes mellitus
     Route: 065
  37. PENICILLIN G [Suspect]
     Active Substance: PENICILLIN G
     Indication: Product used for unknown indication
     Route: 065
  38. PERINDOPRIL [Suspect]
     Active Substance: PERINDOPRIL
     Indication: Product used for unknown indication
     Route: 065
  39. POTASSIUM CHLORIDE [Suspect]
     Active Substance: POTASSIUM CHLORIDE
     Indication: Product used for unknown indication
     Route: 065
  40. PREDNISONE [Suspect]
     Active Substance: PREDNISONE
     Indication: Product used for unknown indication
     Route: 065
  41. ALBUTEROL [Suspect]
     Active Substance: ALBUTEROL
     Indication: Product used for unknown indication
     Route: 065
  42. SENOKOT [Suspect]
     Active Substance: SENNOSIDES
     Indication: Abdominal pain
     Route: 065
  43. SPIRIVA [Suspect]
     Active Substance: TIOTROPIUM BROMIDE MONOHYDRATE
     Indication: Product used for unknown indication
     Route: 065
  44. VIOXX [Suspect]
     Active Substance: ROFECOXIB
     Indication: Urticaria
     Route: 065
  45. VITAMIN D3 [Suspect]
     Active Substance: CHOLECALCIFEROL
     Indication: Product used for unknown indication
     Route: 065
  46. WELLBUTRIN [Suspect]
     Active Substance: BUPROPION HYDROCHLORIDE
     Indication: Urticaria
     Route: 065
  47. ASPIRIN [Concomitant]
     Active Substance: ASPIRIN
     Indication: Product used for unknown indication
     Route: 065
  48. AZITHROMYCIN DIHYDRATE [Concomitant]
     Active Substance: AZITHROMYCIN DIHYDRATE
     Indication: Product used for unknown indication
     Route: 065
  49. CLOPIDOGREL BISULFATE [Concomitant]
     Active Substance: CLOPIDOGREL BISULFATE
     Indication: Anticoagulant therapy
     Route: 065
  50. CLONIDINE [Concomitant]
     Active Substance: CLONIDINE
     Indication: Product used for unknown indication
     Route: 065
  51. PANTOPRAZOLE SODIUM [Concomitant]
     Active Substance: PANTOPRAZOLE SODIUM
     Indication: Product used for unknown indication
     Route: 065
  52. ROSUVASTATIN CALCIUM [Concomitant]
     Active Substance: ROSUVASTATIN CALCIUM
     Indication: Blood cholesterol
     Route: 065
  53. SUMATRIPTAN SUCCINATE [Concomitant]
     Active Substance: SUMATRIPTAN SUCCINATE
     Indication: Product used for unknown indication
     Route: 065
  54. ALBUTEROL [Suspect]
     Active Substance: ALBUTEROL
     Indication: Product used for unknown indication
     Route: 065
  55. ALENDRONATE SODIUM [Suspect]
     Active Substance: ALENDRONATE SODIUM
     Indication: Osteoporosis postmenopausal
     Dosage: NOT SPECIFIED
     Route: 048
  56. ALEVE [Suspect]
     Active Substance: NAPROXEN SODIUM
     Indication: Pruritus
     Route: 065
  57. CEFUROXIME AXETIL [Suspect]
     Active Substance: CEFUROXIME AXETIL
     Indication: Malaise
     Route: 065
  58. POTASSIUM CHLORIDE [Suspect]
     Active Substance: POTASSIUM CHLORIDE
     Indication: Product used for unknown indication
     Dosage: 600 MG
     Route: 065
  59. AZITHROMYCIN [Concomitant]
     Active Substance: AZITHROMYCIN
     Indication: Product used for unknown indication
     Route: 065
  60. CIPROFLOXACIN HYDROCHLORIDE [Suspect]
     Active Substance: CIPROFLOXACIN HYDROCHLORIDE
     Indication: Urticaria
     Route: 065
  61. CLARITHROMYCIN [Suspect]
     Active Substance: CLARITHROMYCIN
     Indication: Cystitis
     Route: 065
  62. CLOPIDOGREL [Concomitant]
     Active Substance: CLOPIDOGREL BISULFATE
     Indication: Product used for unknown indication
     Route: 065
  63. CYPROHEPTADINE HYDROCHLORIDE [Suspect]
     Active Substance: CYPROHEPTADINE HYDROCHLORIDE
     Indication: Urticaria
     Route: 065
  64. FUROSEMIDE [Suspect]
     Active Substance: FUROSEMIDE
     Indication: Fluid retention
     Route: 065
  65. INSULIN NOS [Suspect]
     Active Substance: INSULIN NOS
     Indication: Type 2 diabetes mellitus
     Route: 065
  66. MOXIFLOXACIN [Suspect]
     Active Substance: MOXIFLOXACIN
     Indication: Rash
     Route: 065
  67. NITROLINGUAL [Suspect]
     Active Substance: NITROGLYCERIN
     Indication: Oesophageal spasm
     Route: 065
  68. PENICILLIN [Suspect]
     Active Substance: PENICILLIN
     Indication: Product used for unknown indication
     Route: 065
  69. ROSUVASTATIN [Concomitant]
     Active Substance: ROSUVASTATIN
     Indication: Product used for unknown indication
     Route: 065
  70. ALBUTEROL SULFATE [Suspect]
     Active Substance: ALBUTEROL SULFATE
     Indication: Product used for unknown indication
     Route: 065
  71. SULFADIAZINE\TRIMETHOPRIM [Suspect]
     Active Substance: SULFADIAZINE\TRIMETHOPRIM
     Indication: Stomatitis
     Route: 065
  72. SULFAMETHOXAZOLE [Suspect]
     Active Substance: SULFAMETHOXAZOLE
     Indication: Stomatitis
     Route: 065
  73. SULFATRIM [Suspect]
     Active Substance: SULFAMETHOXAZOLE\TRIMETHOPRIM
     Indication: Stomatitis
     Route: 065
  74. SUMATRIPTAN [Concomitant]
     Active Substance: SUMATRIPTAN
     Indication: Product used for unknown indication
     Route: 065
  75. TYLENOL WITH CODEINE [Suspect]
     Active Substance: ACETAMINOPHEN\CODEINE PHOSPHATE
     Indication: Pruritus
     Route: 065
  76. VITAMIN D [Suspect]
     Active Substance: VITAMIN D NOS
     Indication: Osteoporosis postmenopausal
     Route: 065
  77. PERINDOPRIL [Suspect]
     Active Substance: PERINDOPRIL
     Indication: Blood pressure measurement
  78. TYLENOL WITH CODEINE [Suspect]
     Active Substance: ACETAMINOPHEN\CODEINE PHOSPHATE
     Indication: Product used for unknown indication
     Route: 065
  79. VITAMIN D [Suspect]
     Active Substance: VITAMIN D NOS
     Indication: Osteoporosis
     Route: 065
  80. VITAMIN D [Suspect]
     Active Substance: VITAMIN D NOS
     Indication: Menopausal symptoms
     Route: 065
  81. VITAMIN D [Suspect]
     Active Substance: VITAMIN D NOS
     Indication: Osteoporosis postmenopausal
     Dosage: NOT SPECIFIED
     Route: 065
  82. VITAMIN D [Suspect]
     Active Substance: VITAMIN D NOS
     Indication: Osteoporosis
     Dosage: NOT SPECIFIED
     Route: 065
  83. VITAMIN D [Suspect]
     Active Substance: VITAMIN D NOS
     Indication: Menopausal symptoms
     Dosage: NOT SPECIFIED
     Route: 065
  84. ALENDRONATE SODIUM [Suspect]
     Active Substance: ALENDRONATE SODIUM
     Indication: Osteoporosis
     Dosage: NOT SPECIFIED
     Route: 048
  85. ALENDRONATE SODIUM [Suspect]
     Active Substance: ALENDRONATE SODIUM
     Indication: Osteoporosis
     Dosage: NOT SPECIFIED
     Route: 065
  86. ALENDRONATE SODIUM [Suspect]
     Active Substance: ALENDRONATE SODIUM
     Indication: Osteoporosis
     Route: 065
  87. GABAPENTIN [Suspect]
     Active Substance: GABAPENTIN
     Indication: Product used for unknown indication
     Route: 065
  88. INDOMETHACIN [Suspect]
     Active Substance: INDOMETHACIN
     Indication: Vomiting
     Route: 005
  89. INDOMETHACIN [Suspect]
     Active Substance: INDOMETHACIN
     Indication: Vision blurred
     Route: 005
  90. INDOMETHACIN [Suspect]
     Active Substance: INDOMETHACIN
     Indication: Abdominal pain upper
     Route: 005
  91. NITROFURANTOIN [Suspect]
     Active Substance: NITROFURANTOIN
     Indication: Cystitis
     Route: 048
  92. NOVORAPID [Suspect]
     Active Substance: INSULIN ASPART
     Indication: Type 2 diabetes mellitus
     Route: 058
  93. PERINDOPRIL [Suspect]
     Active Substance: PERINDOPRIL
     Indication: Blood pressure abnormal
     Route: 065
  94. POTASSIUM CHLORIDE [Suspect]
     Active Substance: POTASSIUM CHLORIDE
     Indication: Product used for unknown indication
     Dosage: NOT SPECIFIED
     Route: 065
  95. POTASSIUM CHLORIDE [Suspect]
     Active Substance: POTASSIUM CHLORIDE
     Indication: Product used for unknown indication
     Route: 065
  96. POTASSIUM CHLORIDE [Suspect]
     Active Substance: POTASSIUM CHLORIDE
     Indication: Product used for unknown indication
     Dosage: NOT SPECIFIED
     Route: 065
  97. ALBUTEROL [Suspect]
     Active Substance: ALBUTEROL
     Indication: Product used for unknown indication
     Route: 065
  98. CELEBREX [Suspect]
     Active Substance: CELECOXIB
     Indication: Abdominal pain upper
     Route: 065
  99. CEPHALEXIN [Suspect]
     Active Substance: CEPHALEXIN
     Indication: Product used for unknown indication
     Route: 065
  100. CLOPIDOGREL [Suspect]
     Active Substance: CLOPIDOGREL BISULFATE
     Indication: Anticoagulant therapy
     Route: 065
  101. CYMBALTA [Suspect]
     Active Substance: DULOXETINE HYDROCHLORIDE
     Indication: Depression
     Route: 065
  102. CYMBALTA [Suspect]
     Active Substance: DULOXETINE HYDROCHLORIDE
     Indication: Anxiety
     Route: 065
  103. CYMBALTA [Suspect]
     Active Substance: DULOXETINE HYDROCHLORIDE
     Indication: Depression
     Route: 065
  104. CYMBALTA [Suspect]
     Active Substance: DULOXETINE HYDROCHLORIDE
     Indication: Anxiety
     Route: 065
  105. FERROUS GLUCONATE [Suspect]
     Active Substance: FERROUS GLUCONATE
     Indication: Iron deficiency
     Route: 065
  106. ALENDRONATE SODIUM\CHOLECALCIFEROL [Suspect]
     Active Substance: ALENDRONATE SODIUM\CHOLECALCIFEROL
     Indication: Osteoporosis postmenopausal
     Route: 065
  107. ALENDRONATE SODIUM\CHOLECALCIFEROL [Suspect]
     Active Substance: ALENDRONATE SODIUM\CHOLECALCIFEROL
     Indication: Osteoporosis postmenopausal
     Route: 048
  108. ALENDRONATE SODIUM\CHOLECALCIFEROL [Suspect]
     Active Substance: ALENDRONATE SODIUM\CHOLECALCIFEROL
     Indication: Osteoporosis postmenopausal
     Route: 065
  109. ALENDRONATE SODIUM\CHOLECALCIFEROL [Suspect]
     Active Substance: ALENDRONATE SODIUM\CHOLECALCIFEROL
     Indication: Osteoporosis postmenopausal
     Route: 065
  110. ALENDRONATE SODIUM\CHOLECALCIFEROL [Suspect]
     Active Substance: ALENDRONATE SODIUM\CHOLECALCIFEROL
     Indication: Osteoporosis postmenopausal
     Route: 065
  111. CEFUROXIME AXETIL [Suspect]
     Active Substance: CEFUROXIME AXETIL
     Indication: Fatigue
     Route: 065
  112. CEFUROXIME AXETIL [Suspect]
     Active Substance: CEFUROXIME AXETIL
     Indication: Diarrhoea
     Route: 065
  113. BREO ELLIPTA [Suspect]
     Active Substance: FLUTICASONE FUROATE\VILANTEROL TRIFENATATE
     Indication: Product used for unknown indication
     Dosage: POWDER
  114. BREO ELLIPTA [Suspect]
     Active Substance: FLUTICASONE FUROATE\VILANTEROL TRIFENATATE
     Indication: Product used for unknown indication
     Dosage: POWDER
     Route: 065
  115. POTASSIUM CHLORIDE [Suspect]
     Active Substance: POTASSIUM CHLORIDE
     Indication: Product used for unknown indication
     Dosage: 600 MG
     Route: 065
  116. POTASSIUM CHLORIDE [Suspect]
     Active Substance: POTASSIUM CHLORIDE
     Indication: Product used for unknown indication
     Dosage: 600 MG
     Route: 065
  117. ALENDRONATE SODIUM [Suspect]
     Active Substance: ALENDRONATE SODIUM
     Indication: Osteoporosis postmenopausal
     Dosage: NOT SPECIFIED
     Route: 065
  118. ALENDRONATE SODIUM [Suspect]
     Active Substance: ALENDRONATE SODIUM
     Indication: Osteoporosis postmenopausal
     Route: 065
  119. ALENDRONATE SODIUM [Suspect]
     Active Substance: ALENDRONATE SODIUM
     Indication: Menopause
     Dosage: NOT SPECIFIED
     Route: 048
  120. ALENDRONATE SODIUM [Suspect]
     Active Substance: ALENDRONATE SODIUM
     Indication: Menopause
     Dosage: NOT SPECIFIED
     Route: 065
  121. ALENDRONATE SODIUM [Suspect]
     Active Substance: ALENDRONATE SODIUM
     Indication: Menopause
     Route: 065
  122. CEFUROXIME AXETIL [Suspect]
     Active Substance: CEFUROXIME AXETIL
     Indication: Malaise
     Route: 065
  123. CEFUROXIME AXETIL [Suspect]
     Active Substance: CEFUROXIME AXETIL
     Indication: Fatigue
     Route: 065
  124. CEFUROXIME AXETIL [Suspect]
     Active Substance: CEFUROXIME AXETIL
     Indication: Diarrhoea
     Route: 065
  125. CEPHALEXIN [Suspect]
     Active Substance: CEPHALEXIN
     Indication: Malaise
     Route: 065
  126. CEPHALEXIN [Suspect]
     Active Substance: CEPHALEXIN
     Indication: Dizziness
     Route: 065
  127. CODEINE [Suspect]
     Active Substance: CODEINE
     Indication: Product used for unknown indication
     Route: 065
  128. CYMBALTA [Suspect]
     Active Substance: DULOXETINE HYDROCHLORIDE
     Indication: Anxiety
     Route: 065
  129. FLOVENT [Suspect]
     Active Substance: FLUTICASONE PROPIONATE
     Indication: Asthma
     Route: 065
  130. FLOVENT [Suspect]
     Active Substance: FLUTICASONE PROPIONATE
     Indication: Chronic obstructive pulmonary disease
     Route: 065
  131. FLOVENT [Suspect]
     Active Substance: FLUTICASONE PROPIONATE
     Indication: Asthma
     Route: 065
  132. INDOMETHACIN [Suspect]
     Active Substance: INDOMETHACIN
     Indication: Vision blurred
     Route: 065
  133. INDOMETHACIN [Suspect]
     Active Substance: INDOMETHACIN
     Indication: Abdominal pain upper
     Route: 065
  134. NAPROXEN SODIUM [Suspect]
     Active Substance: NAPROXEN SODIUM
     Indication: Product used for unknown indication
     Route: 065
  135. POTASSIUM CHLORIDE [Suspect]
     Active Substance: POTASSIUM CHLORIDE
     Indication: Product used for unknown indication
     Route: 065
  136. NITROGLYCERIN [Suspect]
     Active Substance: NITROGLYCERIN
     Indication: Oesophageal spasm
     Route: 065

REACTIONS (31)
  - Abdominal pain upper [Unknown]
  - Agitation [Unknown]
  - Anxiety [Unknown]
  - Bronchitis [Unknown]
  - Cystitis [Unknown]
  - Depression [Unknown]
  - Diarrhoea [Unknown]
  - Dizziness [Unknown]
  - Fatigue [Unknown]
  - Feeling abnormal [Unknown]
  - Fibromyalgia [Unknown]
  - Fluid retention [Unknown]
  - Hallucination [Unknown]
  - Hyperhidrosis [Unknown]
  - Lymphoedema [Unknown]
  - Malaise [Unknown]
  - Migraine [Unknown]
  - Myocardial infarction [Unknown]
  - Obstructive sleep apnoea syndrome [Unknown]
  - Oesophageal pain [Unknown]
  - Oesophageal spasm [Unknown]
  - Pneumonia [Unknown]
  - Pruritus [Unknown]
  - Rash [Unknown]
  - Sleep apnoea syndrome [Unknown]
  - Stomatitis [Unknown]
  - Tinnitus [Unknown]
  - Urticaria [Unknown]
  - Vision blurred [Unknown]
  - Vomiting [Unknown]
  - Abdominal pain [Unknown]
